FAERS Safety Report 4985133-3 (Version None)
Quarter: 2006Q2

REPORT INFORMATION
  Report Type: 
  Country: None (occurrence: None)
  Receive Date: 20060427
  Receipt Date: 20060412
  Transmission Date: 20061013
  Serious: Yes (Other)
  Sender: FDA-Public Use
  Company Number: US-AMGEN-STX176081

PATIENT
  Sex: Male
  Weight: 83.1 kg

DRUGS (6)
  1. ENBREL [Suspect]
     Indication: RHEUMATOID ARTHRITIS
  2. LIPITOR [Concomitant]
  3. LOTREL [Concomitant]
  4. PROTONIX [Concomitant]
  5. VITAMIN C AND E [Concomitant]
  6. MULTIVITAMIN [Concomitant]

REACTIONS (8)
  - ASTHENIA [None]
  - DYSARTHRIA [None]
  - FATIGUE [None]
  - GAIT DISTURBANCE [None]
  - MEMORY IMPAIRMENT [None]
  - MENTAL STATUS CHANGES [None]
  - PARAESTHESIA [None]
  - TREMOR [None]
